FAERS Safety Report 4521077-9 (Version None)
Quarter: 2004Q4

REPORT INFORMATION
  Report Type: 
  Country: None (occurrence: None)
  Receive Date: 20041206
  Receipt Date: 20041115
  Transmission Date: 20050328
  Serious: No
  Sender: FDA-Public Use
  Company Number: 2004AC00779

PATIENT
  Age: 17 Year
  Sex: Female
  Weight: 69 kg

DRUGS (3)
  1. BUPIVACAINE [Suspect]
     Indication: ANAESTHESIA
     Dosage: 15 MG ONCE
  2. METOCLOPRAMIDE [Suspect]
     Dosage: GIVEN IN ERROR
  3. FENTANYL [Suspect]
     Dosage: 25 [MU] G

REACTIONS (10)
  - AGITATION [None]
  - DISCOMFORT [None]
  - HEADACHE [None]
  - HYPERTENSION [None]
  - MEDICATION ERROR [None]
  - NAUSEA [None]
  - SOMNOLENCE [None]
  - TACHYCARDIA [None]
  - VISION BLURRED [None]
  - VOMITING [None]
